FAERS Safety Report 4748480-6 (Version None)
Quarter: 2005Q3

REPORT INFORMATION
  Report Type: 
  Country: None (occurrence: None)
  Receive Date: 20050817
  Receipt Date: 20050805
  Transmission Date: 20060218
  Serious: Yes (Death, Hospitalization)
  Sender: FDA-Public Use
  Company Number: A500150401/AKO4828-AE

PATIENT
  Age: 58 Year
  Sex: Female
  Weight: 122.4712 kg

DRUGS (3)
  1. METHYLENE BLUE 1%, [Suspect]
     Indication: SURGERY
     Dosage: INTRAVENOUS
     Route: 042
     Dates: start: 20050801, end: 20050801
  2. EFFEXOR [Concomitant]
  3. PAXIL CR [Concomitant]

REACTIONS (4)
  - AGGRESSION [None]
  - FEELING HOT [None]
  - POST PROCEDURAL COMPLICATION [None]
  - PYREXIA [None]
